FAERS Safety Report 9543327 (Version 3)
Quarter: 2013Q4

REPORT INFORMATION
  Report Type: Spontaneous
  Country: JP (occurrence: JP)
  Receive Date: 20130923
  Receipt Date: 20131009
  Transmission Date: 20140711
  Serious: Yes (Other)
  Sender: FDA-Public Use
  Company Number: JP-PFIZER INC-2013269879

PATIENT
  Age: 80 Year
  Sex: Male

DRUGS (6)
  1. CELECOX [Suspect]
     Indication: CERVICOBRACHIAL SYNDROME
     Dosage: 200 MG, DAILY
     Route: 048
  2. BAYASPIRIN [Suspect]
     Dosage: 100 MG, 1X/DAY
     Route: 048
  3. HARNAL D [Concomitant]
     Indication: BENIGN PROSTATIC HYPERPLASIA
     Dosage: UNK
  4. ITOROL [Concomitant]
     Dosage: UNK
  5. DEPAS [Concomitant]
     Dosage: UNK
     Route: 048
  6. ADETPHOS [Concomitant]
     Dosage: UNK
     Route: 048

REACTIONS (2)
  - Dermatitis [Not Recovered/Not Resolved]
  - Haemorrhage [Not Recovered/Not Resolved]
